FAERS Safety Report 19119541 (Version 1)
Quarter: 2021Q2

REPORT INFORMATION
  Report Type: Report from Study
  Country: None (occurrence: JP)
  Receive Date: 20210412
  Receipt Date: 20210412
  Transmission Date: 20210717
  Serious: Yes (Other)
  Sender: FDA-Public Use
  Company Number: JP-ABBVIE-21K-087-3849967-00

PATIENT
  Age: 50 Year
  Sex: Female

DRUGS (2)
  1. HUMIRA [Suspect]
     Active Substance: ADALIMUMAB
     Indication: COLLAGEN DISORDER
     Route: 058
     Dates: start: 202011
  2. HUMIRA [Suspect]
     Active Substance: ADALIMUMAB
     Indication: COLITIS ULCERATIVE

REACTIONS (5)
  - Malaise [Recovered/Resolved]
  - Eye swelling [Recovered/Resolved]
  - Injection site swelling [Unknown]
  - Systemic lupus erythematosus [Recovered/Resolved]
  - Circumoral swelling [Recovered/Resolved]

NARRATIVE: CASE EVENT DATE: 2021
